FAERS Safety Report 5792231-3 (Version None)
Quarter: 2008Q2

REPORT INFORMATION
  Report Type: 
  Country: None (occurrence: None)
  Receive Date: 20080626
  Receipt Date: 20080407
  Transmission Date: 20081010
  Serious: No
  Sender: FDA-Public Use
  Company Number: US-ASTRAZENECA-2008UW05017

PATIENT
  Age: 60 Year
  Sex: Female
  Weight: 63.5 kg

DRUGS (4)
  1. PULMICORT FLEXHALER [Suspect]
     Indication: PULMONARY FUNCTION TEST DECREASED
     Route: 055
     Dates: start: 20080201
  2. SPIRIVA [Concomitant]
  3. SEROVENT [Concomitant]
  4. EVISTA [Concomitant]

REACTIONS (4)
  - HERPES ZOSTER [None]
  - PAIN IN EXTREMITY [None]
  - PHARMACEUTICAL PRODUCT COMPLAINT [None]
  - RASH PRURITIC [None]
